FAERS Safety Report 13596892 (Version 1)
Quarter: 2017Q2

REPORT INFORMATION
  Report Type: Spontaneous
  Country: US (occurrence: US)
  Receive Date: 20170520
  Receipt Date: 20170520
  Transmission Date: 20170830
  Serious: Yes (Other)
  Sender: FDA-Public Use
  Company Number: None

PATIENT
  Age: 43 Year
  Sex: Female
  Weight: 72 kg

DRUGS (6)
  1. CLINDAMYCIN. [Suspect]
     Active Substance: CLINDAMYCIN
     Indication: SINUSITIS
     Dosage: ?          QUANTITY:1 CAPSULE(S);?
     Route: 048
     Dates: start: 20170506, end: 20170513
  2. CLINDAMYCIN. [Suspect]
     Active Substance: CLINDAMYCIN
     Indication: BACTERIAL INFECTION
     Dosage: ?          QUANTITY:1 CAPSULE(S);?
     Route: 048
     Dates: start: 20170506, end: 20170513
  3. NASAL SPRAY [Concomitant]
     Active Substance: UNSPECIFIED INGREDIENT
  4. VITAMIN [Concomitant]
     Active Substance: VITAMINS
  5. SLUFAMETH [Concomitant]
  6. APPLE CIDER VINEGAR [Concomitant]
     Active Substance: APPLE CIDER VINEGAR

REACTIONS (1)
  - Swollen tongue [None]

NARRATIVE: CASE EVENT DATE: 20170506
